FAERS Safety Report 5456497-1 (Version None)
Quarter: 2007Q3

REPORT INFORMATION
  Report Type: 
  Country: None (occurrence: None)
  Receive Date: 20070918
  Receipt Date: 20070531
  Transmission Date: 20080115
  Serious: Yes (Other)
  Sender: FDA-Public Use
  Company Number: US-ASTRAZENECA-2006UW25193

PATIENT
  Sex: Male
  Weight: 97.7 kg

DRUGS (9)
  1. SEROQUEL [Suspect]
     Indication: BIPOLAR DISORDER
     Route: 048
     Dates: start: 19970101, end: 20020101
  2. SEROQUEL [Suspect]
     Indication: SCHIZOPHRENIA
     Route: 048
     Dates: start: 19970101, end: 20020101
  3. SEROQUEL [Suspect]
     Indication: DEPRESSION
     Route: 048
     Dates: start: 19970101, end: 20020101
  4. ABILIFY [Concomitant]
     Route: 048
  5. CLOZARIL [Concomitant]
     Route: 048
  6. NAVANE [Concomitant]
     Route: 048
  7. THORAZINE [Concomitant]
  8. TRILIFON [Concomitant]
     Route: 048
  9. ZYPREXA [Concomitant]
     Route: 048

REACTIONS (1)
  - PANCREATITIS [None]
